FAERS Safety Report 24871806 (Version 1)
Quarter: 2025Q1

REPORT INFORMATION
  Report Type: Spontaneous
  Country: US (occurrence: US)
  Receive Date: 20250122
  Receipt Date: 20250122
  Transmission Date: 20250409
  Serious: No
  Sender: COSETTE PHARMACEUTICALS INC
  Company Number: US-COSETTE-CP2025US000015

PATIENT
  Age: 73 Year
  Sex: Female
  Weight: 48.53 kg

DRUGS (1)
  1. TRIAMCINOLONE ACETONIDE [Suspect]
     Active Substance: TRIAMCINOLONE ACETONIDE
     Indication: Oral disorder
     Route: 048
     Dates: start: 202412, end: 20250105

REACTIONS (2)
  - Drug ineffective [Unknown]
  - Product physical issue [Unknown]
